FAERS Safety Report 18595917 (Version 1)
Quarter: 2020Q4

REPORT INFORMATION
  Report Type: Spontaneous
  Country: None (occurrence: US)
  Receive Date: 20201209
  Receipt Date: 20201209
  Transmission Date: 20210114
  Serious: No
  Sender: FDA-Public Use
  Company Number: US-SUPERNUS PHARMACEUTICALS, INC.-2020SUP00136

PATIENT

DRUGS (1)
  1. TROKENDI XR [Suspect]
     Active Substance: TOPIRAMATE
     Indication: HEADACHE

REACTIONS (5)
  - Anxiety [Unknown]
  - Discomfort [Unknown]
  - Drug ineffective for unapproved indication [Unknown]
  - Depressed level of consciousness [Unknown]
  - Mental disorder [Unknown]
